FAERS Safety Report 4657503-4 (Version None)
Quarter: 2005Q2

REPORT INFORMATION
  Report Type: 
  Country: None (occurrence: None)
  Receive Date: 20050506
  Receipt Date: 20050426
  Transmission Date: 20051028
  Serious: Yes (Other)
  Sender: FDA-Public Use
  Company Number: HQWYE419305JAN05

PATIENT
  Age: 38 Year
  Sex: Female
  Weight: 74.46 kg

DRUGS (3)
  1. EFFEXOR XR [Suspect]
     Indication: DEPRESSION
     Dosage: SEE IMAGE
  2. EFFEXOR XR [Suspect]
     Indication: DEPRESSION
     Dosage: SEE IMAGE
     Dates: start: 20030901
  3. ESTROPIPATE [Concomitant]

REACTIONS (17)
  - ABNORMAL BEHAVIOUR [None]
  - AGGRESSION [None]
  - AGITATION [None]
  - AMNESIA [None]
  - ASTHENIA [None]
  - CONVULSION [None]
  - CRYING [None]
  - DIZZINESS [None]
  - DRUG DOSE OMISSION [None]
  - DRUG WITHDRAWAL SYNDROME [None]
  - FACIAL BONES FRACTURE [None]
  - FALL [None]
  - HEAD INJURY [None]
  - LOSS OF CONSCIOUSNESS [None]
  - MEDICATION ERROR [None]
  - SWELLING [None]
  - SYNCOPE [None]
